FAERS Safety Report 4924088-4 (Version None)
Quarter: 2006Q1

REPORT INFORMATION
  Report Type: 
  Country: None (occurrence: None)
  Receive Date: 20060227
  Receipt Date: 20051110
  Transmission Date: 20060701
  Serious: No
  Sender: FDA-Public Use
  Company Number: US-GLAXOSMITHKLINE-A0581822A

PATIENT
  Age: 14 Year
  Sex: Female

DRUGS (3)
  1. WELLBUTRIN XL [Suspect]
     Dosage: 300MG PER DAY
     Route: 048
  2. TRILEPTAL [Concomitant]
  3. MULTI-VITAMIN [Concomitant]

REACTIONS (1)
  - INSOMNIA [None]
